FAERS Safety Report 9916871 (Version 2)
Quarter: 2014Q1

REPORT INFORMATION
  Report Type: Spontaneous
  Country: FR (occurrence: FR)
  Receive Date: 20140221
  Receipt Date: 20140221
  Transmission Date: 20141002
  Serious: Yes (Death, Hospitalization)
  Sender: FDA-Public Use
  Company Number: FR-B.I. PHARMACEUTICALS,INC./RIDGEFIELD-2014-BI-00671FF

PATIENT
  Age: 89 Year
  Sex: Male

DRUGS (4)
  1. PRADAXA [Suspect]
     Indication: ATRIAL FIBRILLATION
     Route: 048
     Dates: end: 20131223
  2. CORDARONE [Concomitant]
     Indication: ATRIAL FIBRILLATION
     Route: 065
  3. LASILIX 40 [Concomitant]
     Route: 065
  4. RAMIPRIL 2.5 [Concomitant]
     Route: 065

REACTIONS (3)
  - Meningorrhagia [Fatal]
  - Intraventricular haemorrhage [Fatal]
  - Cerebral haematoma [Fatal]
